FAERS Safety Report 9116603 (Version 1)
Quarter: 2013Q1

REPORT INFORMATION
  Report Type: Report from Study
  Country: CA (occurrence: CA)
  Receive Date: 20130225
  Receipt Date: 20130225
  Transmission Date: 20140127
  Serious: Yes (Other)
  Sender: FDA-Public Use
  Company Number: CA-JNJFOC-20130212687

PATIENT
  Sex: Male
  Weight: 115 kg

DRUGS (11)
  1. REMICADE [Suspect]
     Indication: ANKYLOSING SPONDYLITIS
     Route: 042
     Dates: start: 20001002
  2. ATORVASTATIN [Concomitant]
     Route: 065
  3. TERAZOSIN [Concomitant]
     Route: 065
  4. COZAAR [Concomitant]
     Route: 065
  5. ADALAT [Concomitant]
     Route: 065
  6. METFORMIN [Concomitant]
     Route: 065
  7. PANTOPRAZOLE [Concomitant]
     Route: 065
  8. METHOTREXATE [Concomitant]
     Route: 048
  9. SENOKOT [Concomitant]
     Dosage: 8.6 (UNIT UNSPECIFIED)
     Route: 065
  10. OXYCONTIN [Concomitant]
     Route: 065
  11. FOLIC ACID [Concomitant]
     Route: 065

REACTIONS (1)
  - Cataract [Recovered/Resolved]
